FAERS Safety Report 4382964-8 (Version None)
Quarter: 2004Q2

REPORT INFORMATION
  Report Type: 
  Country: None (occurrence: None)
  Receive Date: 20040617
  Receipt Date: 20040606
  Transmission Date: 20050107
  Serious: Yes (Hospitalization)
  Sender: FDA-Public Use
  Company Number: 04P-163-0263075-00

PATIENT
  Age: 55 Year
  Sex: Female

DRUGS (3)
  1. ULTANE [Suspect]
     Indication: ANAESTHESIA
     Dosage: 2 %, ONCE, INHALATION
     Route: 055
     Dates: start: 20040603, end: 20040603
  2. OXYGEN [Concomitant]
  3. NITROUS OXIDE [Concomitant]

REACTIONS (3)
  - HAEMORRHAGE [None]
  - OBSTRUCTIVE AIRWAYS DISORDER [None]
  - RESPIRATORY FAILURE [None]
